FAERS Safety Report 15255430 (Version 3)
Quarter: 2018Q4

REPORT INFORMATION
  Report Type: Report from Study
  Country: US (occurrence: US)
  Receive Date: 20180808
  Receipt Date: 20181118
  Transmission Date: 20190204
  Serious: Yes (Other)
  Sender: FDA-Public Use
  Company Number: US-ALEXION PHARMACEUTICALS INC.-A201809944

PATIENT
  Age: 69 Year
  Sex: Male
  Weight: 82.99 kg

DRUGS (2)
  1. SOLIRIS [Suspect]
     Active Substance: ECULIZUMAB
     Indication: ATYPICAL HAEMOLYTIC URAEMIC SYNDROME
     Dosage: UNK
     Route: 065
  2. SOLIRIS [Suspect]
     Active Substance: ECULIZUMAB
     Dosage: 1200 MG, Q2W
     Route: 042
     Dates: start: 20151223, end: 20180626

REACTIONS (14)
  - Wound complication [Recovered/Resolved]
  - Drug ineffective [Unknown]
  - Peripheral swelling [Unknown]
  - Joint swelling [Unknown]
  - Fatigue [Unknown]
  - Hypotension [Unknown]
  - Infected skin ulcer [Recovered/Resolved]
  - Gout [Unknown]
  - End stage renal disease [Unknown]
  - Acute respiratory failure [Unknown]
  - Pleural effusion [Unknown]
  - Stasis dermatitis [Unknown]
  - Erythema [Recovering/Resolving]
  - Deep vein thrombosis [Unknown]

NARRATIVE: CASE EVENT DATE: 20160209
